FAERS Safety Report 18631823 (Version 3)
Quarter: 2021Q1

REPORT INFORMATION
  Report Type: Spontaneous
  Country: RU (occurrence: RU)
  Receive Date: 20201218
  Receipt Date: 20210106
  Transmission Date: 20210419
  Serious: Yes (Other)
  Sender: FDA-Public Use
  Company Number: RU-REGENERON PHARMACEUTICALS, INC.-2020-95323

PATIENT

DRUGS (1)
  1. EYLEA [Suspect]
     Active Substance: AFLIBERCEPT
     Indication: PRODUCT USED FOR UNKNOWN INDICATION
     Dosage: UNK, LEFT EYE, 3 MONTHLY INTRAVITREAL INJECTIONS

REACTIONS (3)
  - Macular oedema [Unknown]
  - Visual impairment [Unknown]
  - Incorrect product administration duration [Unknown]
